FAERS Safety Report 5241624-1 (Version None)
Quarter: 2007Q1

REPORT INFORMATION
  Report Type: 
  Country: None (occurrence: None)
  Receive Date: 20070215
  Receipt Date: 20070215
  Transmission Date: 20070707
  Serious: Yes (Hospitalization)
  Sender: FDA-Public Use
  Company Number: None

PATIENT
  Age: 73 Year
  Sex: Female
  Weight: 71.6683 kg

DRUGS (2)
  1. ABRAXANE [Suspect]
     Indication: OVARIAN CANCER RECURRENT
     Dosage: 169.0MG/M2  D1,D8,D15  042
     Dates: start: 20061117
  2. CARBOPLATIN [Suspect]
     Indication: OVARIAN CANCER RECURRENT
     Dosage: 405.0 MG/M2  D1 EVERY 28 DAYS 042
     Dates: start: 20060623

REACTIONS (3)
  - METASTASES TO GASTROINTESTINAL TRACT [None]
  - OVARIAN CANCER METASTATIC [None]
  - SMALL INTESTINAL OBSTRUCTION [None]
